FAERS Safety Report 4833144-0 (Version None)
Quarter: 2005Q4

REPORT INFORMATION
  Report Type: 
  Country: None (occurrence: None)
  Receive Date: 20051117
  Receipt Date: 20051025
  Transmission Date: 20060501
  Serious: Yes (Hospitalization)
  Sender: FDA-Public Use
  Company Number: JP_051007985

PATIENT
  Age: 13 Year
  Sex: Female
  Weight: 24 kg

DRUGS (1)
  1. HUMATROPE [Suspect]
     Indication: GROWTH HORMONE DEFICIENCY
     Dosage: 0.8 MG/6 WEEK
     Dates: start: 20030722

REACTIONS (1)
  - LOWER LIMB FRACTURE [None]
